FAERS Safety Report 5343863-8 (Version None)
Quarter: 2007Q2

REPORT INFORMATION
  Report Type: 
  Country: None (occurrence: None)
  Receive Date: 20070531
  Receipt Date: 20070531
  Transmission Date: 20071010
  Serious: Yes (Disabling)
  Sender: FDA-Public Use
  Company Number: None

PATIENT
  Age: 42 Year
  Sex: Female
  Weight: 52.1637 kg

DRUGS (1)
  1. LEVAQUIN [Suspect]
     Indication: SINUSITIS
     Dosage: 500MG  1 PO
     Route: 048
     Dates: start: 20070205, end: 20070209

REACTIONS (18)
  - ARTHRALGIA [None]
  - BURNING SENSATION [None]
  - CHEST DISCOMFORT [None]
  - CONDITION AGGRAVATED [None]
  - DIZZINESS [None]
  - EAR PAIN [None]
  - FATIGUE [None]
  - HEADACHE [None]
  - INSOMNIA [None]
  - MUSCLE TWITCHING [None]
  - MUSCULOSKELETAL PAIN [None]
  - NAUSEA [None]
  - NECK PAIN [None]
  - PAIN [None]
  - TIC [None]
  - TINNITUS [None]
  - TREMOR [None]
  - VISUAL DISTURBANCE [None]
